FAERS Safety Report 8430328-X (Version None)
Quarter: 2012Q2

REPORT INFORMATION
  Report Type: 
  Country: None (occurrence: None)
  Receive Date: 20120323
  Receipt Date: 20110705
  Transmission Date: 20120825
  Serious: Yes (Hospitalization)
  Sender: FDA-Public Use
  Company Number: 163-21880-11070445

PATIENT
  Age: 66 Year
  Sex: Male
  Weight: 94.8018 kg

DRUGS (8)
  1. FISH OIL (FISH OIL) [Concomitant]
  2. GABAPENTIN [Concomitant]
  3. VITAMIN D [Concomitant]
  4. ACYCLOVIR [Concomitant]
  5. SIMVASTATIN [Concomitant]
  6. REVLIMID [Suspect]
     Indication: MULTIPLE MYELOMA
     Dosage: 5 MG, DAILY FOR 28 DAYS, PO
     Route: 048
     Dates: start: 20110309
  7. METOPROLOL TARTRATE [Concomitant]
  8. MULTIVITAMIN [Concomitant]

REACTIONS (1)
  - MYOCARDIAL INFARCTION [None]
